FAERS Safety Report 13046355 (Version 1)
Quarter: 2016Q4

REPORT INFORMATION
  Report Type: Spontaneous
  Country: BE (occurrence: BE)
  Receive Date: 20161220
  Receipt Date: 20161220
  Transmission Date: 20170207
  Serious: Yes (Other)
  Sender: FDA-Public Use
  Company Number: BE-JNJFOC-20161214306

PATIENT

DRUGS (2)
  1. METHYLPHENIDATE HYDROCHLORIDE. [Suspect]
     Active Substance: METHYLPHENIDATE HYDROCHLORIDE
     Indication: DISTURBANCE IN ATTENTION
     Route: 065
  2. METHYLPHENIDATE HYDROCHLORIDE. [Suspect]
     Active Substance: METHYLPHENIDATE HYDROCHLORIDE
     Indication: FATIGUE
     Route: 065

REACTIONS (22)
  - Hyperventilation [Unknown]
  - Blood pressure abnormal [Unknown]
  - Chest discomfort [Unknown]
  - Off label use [Unknown]
  - Dry mouth [Unknown]
  - Abdominal discomfort [Unknown]
  - Alopecia [Unknown]
  - Drug ineffective for unapproved indication [Unknown]
  - Insomnia [Unknown]
  - Feeling abnormal [Unknown]
  - Appetite disorder [Unknown]
  - Hyperhidrosis [Unknown]
  - Hypoaesthesia [Unknown]
  - Dizziness [Unknown]
  - Drug dependence [Unknown]
  - Palpitations [Unknown]
  - Nausea [Unknown]
  - Confusional state [Unknown]
  - Agitation [Unknown]
  - Headache [Unknown]
  - Inappropriate schedule of drug administration [Unknown]
  - Anxiety [Unknown]
